FAERS Safety Report 23329194 (Version 2)
Quarter: 2023Q4

REPORT INFORMATION
  Report Type: Spontaneous
  Country: JP (occurrence: JP)
  Receive Date: 20231222
  Receipt Date: 20231229
  Transmission Date: 20240110
  Serious: Yes (Hospitalization, Other)
  Sender: FDA-Public Use
  Company Number: JP-GLAXOSMITHKLINE-JP2023JPN176888

PATIENT

DRUGS (2)
  1. VALTREX [Suspect]
     Active Substance: VALACYCLOVIR HYDROCHLORIDE
     Indication: Herpes zoster
     Dosage: 3000 MG, QD
  2. LOXOPROFEN [Suspect]
     Active Substance: LOXOPROFEN
     Indication: Pain
     Dosage: UNK, AS NEEDED

REACTIONS (6)
  - Acute kidney injury [Unknown]
  - Altered state of consciousness [Recovered/Resolved]
  - Nephropathy toxic [Unknown]
  - Toxic encephalopathy [Unknown]
  - Renal impairment [Recovered/Resolved]
  - Decreased appetite [Unknown]
